FAERS Safety Report 6260458-2 (Version None)
Quarter: 2009Q3

REPORT INFORMATION
  Report Type: 
  Country: None (occurrence: None)
  Receive Date: 20090706
  Receipt Date: 20090618
  Transmission Date: 20100115
  Serious: Yes (Hospitalization)
  Sender: FDA-Public Use
  Company Number: 09-000989

PATIENT
  Age: 53 Year
  Sex: Male

DRUGS (1)
  1. TACLONEX [Suspect]
     Dosage: TOPICAL
     Route: 061

REACTIONS (3)
  - ERYTHRODERMIC PSORIASIS [None]
  - INTENTIONAL DRUG MISUSE [None]
  - OVERDOSE [None]
